FAERS Safety Report 4870086-9 (Version None)
Quarter: 2005Q4

REPORT INFORMATION
  Report Type: 
  Country: None (occurrence: None)
  Receive Date: 20051227
  Receipt Date: 20051209
  Transmission Date: 20060501
  Serious: Yes (Hospitalization, Other)
  Sender: FDA-Public Use
  Company Number: 220215

PATIENT
  Age: 63 Year
  Sex: Male
  Weight: 88.4 kg

DRUGS (6)
  1. NUTROPIN AQ [Suspect]
     Indication: PITUITARY TUMOUR BENIGN
     Dosage: 0.2 MG, QD, SUBCUTANEOUS
     Route: 058
     Dates: start: 20051014
  2. LISINOPRIL [Suspect]
     Dates: start: 19730101
  3. CABERGOLINE [Concomitant]
  4. HORMONE REPLACEMENT THERAPY (HORMONES NOS) [Suspect]
  5. ASPIRIN [Concomitant]
  6. LIPITOR [Concomitant]

REACTIONS (1)
  - GLOBAL AMNESIA [None]
